FAERS Safety Report 26189142 (Version 1)
Quarter: 2025Q4

REPORT INFORMATION
  Report Type: Spontaneous
  Country: RU (occurrence: RU)
  Receive Date: 20251223
  Receipt Date: 20251223
  Transmission Date: 20260117
  Serious: Yes (Hospitalization)
  Sender: ROCHE
  Company Number: RU-ROCHE-10000462663

PATIENT
  Age: 66 Year
  Sex: Male

DRUGS (10)
  1. ATEZOLIZUMAB [Suspect]
     Active Substance: ATEZOLIZUMAB
     Indication: Lung neoplasm
     Dates: start: 20231228, end: 20240130
  2. ATEZOLIZUMAB [Suspect]
     Active Substance: ATEZOLIZUMAB
     Indication: Metastases to central nervous system
  3. ATEZOLIZUMAB [Suspect]
     Active Substance: ATEZOLIZUMAB
  4. BEVACIZUMAB [Suspect]
     Active Substance: BEVACIZUMAB
     Indication: Lung neoplasm
     Dates: start: 20231228, end: 20240130
  5. BEVACIZUMAB [Suspect]
     Active Substance: BEVACIZUMAB
     Indication: Metastases to central nervous system
  6. BEVACIZUMAB [Suspect]
     Active Substance: BEVACIZUMAB
  7. PACLITAXEL [Suspect]
     Active Substance: PACLITAXEL
     Indication: Metastases to central nervous system
     Route: 042
     Dates: start: 20230925, end: 20231128
  8. PACLITAXEL [Suspect]
     Active Substance: PACLITAXEL
     Indication: Lung neoplasm
     Dosage: 175-200 MILLIGRAMS PER SQUARE METER
     Dates: start: 20231228, end: 20240130
  9. CARBOPLATIN [Suspect]
     Active Substance: CARBOPLATIN
     Indication: Metastases to central nervous system
     Dosage: AUC 5-6
     Dates: start: 20230925, end: 20231128
  10. CARBOPLATIN [Suspect]
     Active Substance: CARBOPLATIN
     Indication: Lung neoplasm
     Dosage: AUC 6
     Dates: start: 20231228, end: 20240130

REACTIONS (1)
  - Atrial flutter [Recovering/Resolving]
